FAERS Safety Report 10071939 (Version 1)
Quarter: 2014Q2

REPORT INFORMATION
  Report Type: Spontaneous
  Country: NL (occurrence: NL)
  Receive Date: 20140411
  Receipt Date: 20140411
  Transmission Date: 20141212
  Serious: Yes (Hospitalization)
  Sender: FDA-Public Use
  Company Number: NL-AMGEN-NLDSP2014025296

PATIENT
  Age: 73 Year
  Sex: Female

DRUGS (2)
  1. XGEVA [Suspect]
     Indication: PROPHYLAXIS
     Dosage: UNK UNK, Q4WK
     Route: 058
     Dates: start: 20131204
  2. XGEVA [Suspect]
     Indication: METASTASES TO BONE

REACTIONS (1)
  - Investigation [Unknown]
